FAERS Safety Report 6638642-5 (Version None)
Quarter: 2010Q1

REPORT INFORMATION
  Report Type: 
  Country: None (occurrence: None)
  Receive Date: 20100317
  Receipt Date: 20100308
  Transmission Date: 20100710
  Serious: Yes (Other)
  Sender: FDA-Public Use
  Company Number: US-AMGEN-QUU398195

PATIENT
  Sex: Male

DRUGS (4)
  1. NPLATE [Suspect]
     Indication: IDIOPATHIC THROMBOCYTOPENIC PURPURA
     Dates: start: 20080529
  2. CORTICOSTEROIDS [Concomitant]
     Dates: start: 20080528
  3. IMMU-G [Concomitant]
     Dates: start: 20091026
  4. RITUXIMAB [Concomitant]
     Dates: start: 20090123, end: 20090213

REACTIONS (1)
  - EMBOLISM [None]
